FAERS Safety Report 21596932 (Version 2)
Quarter: 2023Q1

REPORT INFORMATION
  Report Type: Report from Study
  Country: US (occurrence: US)
  Receive Date: 20221115
  Receipt Date: 20230117
  Transmission Date: 20230417
  Serious: No
  Sender: FDA-Public Use
  Company Number: US-ABBVIE-22K-163-4490533-00

PATIENT
  Sex: Male

DRUGS (2)
  1. HUMIRA [Suspect]
     Active Substance: ADALIMUMAB
     Indication: Crohn^s disease
     Dosage: CITRATE FREE
     Route: 058
     Dates: start: 2022
  2. HUMIRA [Suspect]
     Active Substance: ADALIMUMAB
     Dosage: CITRATE FREE?START DATE-2022
     Route: 058

REACTIONS (9)
  - Injection site bruising [Recovered/Resolved]
  - Peripheral swelling [Unknown]
  - Crohn^s disease [Not Recovered/Not Resolved]
  - Joint swelling [Unknown]
  - Haemorrhage [Unknown]
  - Papule [Unknown]
  - Injection site bruising [Recovered/Resolved]
  - Oedema [Unknown]
  - Therapeutic response shortened [Unknown]

NARRATIVE: CASE EVENT DATE: 20220101
